FAERS Safety Report 10098466 (Version 1)
Quarter: 2014Q2

REPORT INFORMATION
  Report Type: Spontaneous
  Country: US (occurrence: None)
  Receive Date: 20140422
  Receipt Date: 20140422
  Transmission Date: 20141212
  Serious: Yes (Other)
  Sender: FDA-Public Use
  Company Number: None

PATIENT
  Age: 53 Year
  Sex: Female
  Weight: 63.5 kg

DRUGS (2)
  1. ISONIAZID [Suspect]
     Indication: TUBERCULOSIS
     Dosage: 1 TABLET QD ORAL
     Route: 048
     Dates: start: 20140312, end: 20140327
  2. VITAMIN B6 [Concomitant]

REACTIONS (4)
  - Eye oedema [None]
  - Rash [None]
  - Lip swelling [None]
  - Pruritus [None]
